FAERS Safety Report 16362382 (Version 3)
Quarter: 2019Q2

REPORT INFORMATION
  Report Type: Spontaneous
  Country: US (occurrence: US)
  Receive Date: 20190528
  Receipt Date: 20190603
  Transmission Date: 20190711
  Serious: No
  Sender: FDA-Public Use
  Company Number: US-PFIZER INC-2019222863

PATIENT
  Age: 3 Year
  Sex: Female
  Weight: 11.34 kg

DRUGS (2)
  1. FLUOCINOLONE ACETONIDE. [Concomitant]
     Active Substance: FLUOCINOLONE ACETONIDE
     Indication: DERMATITIS ATOPIC
     Dosage: UNK UNK, 2X/DAY (.01% BODY OIL APPLIED TOPICALLY TWICE DAILY)
     Route: 061
     Dates: start: 20190415, end: 20190517
  2. EUCRISA [Suspect]
     Active Substance: CRISABOROLE
     Indication: DERMATITIS ATOPIC
     Dosage: UNK, 2X/DAY (2%, 2 TIMES DAILY APPLIED TOPICALLY)
     Route: 061
     Dates: start: 20190514

REACTIONS (2)
  - Rash papular [Recovered/Resolved]
  - Keratosis pilaris [Unknown]
